FAERS Safety Report 5506412-7 (Version None)
Quarter: 2007Q4

REPORT INFORMATION
  Report Type: 
  Country: None (occurrence: None)
  Receive Date: 20071101
  Receipt Date: 20071101
  Transmission Date: 20080405
  Serious: Yes (Other)
  Sender: FDA-Public Use
  Company Number: None

PATIENT
  Age: 39 Year
  Sex: Female
  Weight: 62.5964 kg

DRUGS (3)
  1. CYMBALTA [Suspect]
     Indication: FIBROMYALGIA
     Dosage: 60MG  QD  PO
     Route: 048
     Dates: start: 20070601, end: 20070823
  2. NEURONTIN [Concomitant]
  3. ESTRADIOL [Concomitant]

REACTIONS (12)
  - DEPRESSION [None]
  - DIARRHOEA [None]
  - DRUG WITHDRAWAL SYNDROME [None]
  - FATIGUE [None]
  - HYPERHIDROSIS [None]
  - INITIAL INSOMNIA [None]
  - MOOD SWINGS [None]
  - NAUSEA [None]
  - NIGHTMARE [None]
  - PARAESTHESIA [None]
  - PARANOIA [None]
  - VOMITING [None]
